FAERS Safety Report 4401755-2 (Version None)
Quarter: 2004Q3

REPORT INFORMATION
  Report Type: 
  Country: None (occurrence: None)
  Receive Date: 20040714
  Receipt Date: 20040629
  Transmission Date: 20050211
  Serious: Yes (Hospitalization)
  Sender: FDA-Public Use
  Company Number: USA040568577

PATIENT
  Age: 35 Year
  Sex: Female
  Weight: 97 kg

DRUGS (3)
  1. STRATTERA [Suspect]
     Indication: ATTENTION DEFICIT/HYPERACTIVITY DISORDER
     Dosage: 98 MG DAY
     Dates: start: 20030101
  2. LEXAPRO [Concomitant]
  3. NUVARING [Concomitant]

REACTIONS (1)
  - BLOOD PRESSURE INCREASED [None]
